FAERS Safety Report 6057019-7 (Version None)
Quarter: 2009Q1

REPORT INFORMATION
  Report Type: 
  Country: None (occurrence: None)
  Receive Date: 20090129
  Receipt Date: 20090121
  Transmission Date: 20090719
  Serious: Yes (Hospitalization)
  Sender: FDA-Public Use
  Company Number: FR-AMGEN-US330566

PATIENT
  Sex: Male

DRUGS (12)
  1. ENBREL [Suspect]
     Indication: PSORIASIS
     Route: 058
     Dates: start: 20071201, end: 20080601
  2. FORLAX [Concomitant]
     Dosage: UNKNOWN
     Route: 048
  3. FONZYLANE [Concomitant]
     Dosage: UNKNOWN
     Route: 065
  4. OMEPRAZOLE [Concomitant]
     Dosage: UNKNOWN
     Route: 065
  5. CALCIDIA [Concomitant]
     Dosage: UNKNOWN
     Route: 048
  6. KARDEGIC [Concomitant]
     Dosage: UNKNOWN
     Route: 065
  7. LYRICA [Concomitant]
     Dosage: UNKNOWN
     Route: 048
  8. TAHOR [Concomitant]
     Dosage: UNKNOWN
     Route: 048
  9. ESIDRIX [Concomitant]
     Dosage: UNKNOWN
     Route: 048
  10. SPECIAFOLDINE [Concomitant]
     Dosage: UNKNOWN
     Route: 048
  11. STILNOX [Concomitant]
     Dosage: UNKNOWN
     Route: 048
  12. LASILIX [Concomitant]
     Dosage: UNKNOWN
     Route: 065

REACTIONS (2)
  - HEPATIC CIRRHOSIS [None]
  - HEPATIC STEATOSIS [None]
